FAERS Safety Report 15245582 (Version 9)
Quarter: 2020Q1

REPORT INFORMATION
  Report Type: Spontaneous
  Country: DE (occurrence: DE)
  Receive Date: 20180806
  Receipt Date: 20200219
  Transmission Date: 20200409
  Serious: Yes (Hospitalization, Other)
  Sender: FDA-Public Use
  Company Number: PHHY2018DE058631

PATIENT
  Age: 48 Year
  Sex: Male
  Weight: 76 kg

DRUGS (22)
  1. OXALIPLATIN. [Suspect]
     Active Substance: OXALIPLATIN
     Dosage: 85 MG, UNK
     Route: 065
     Dates: start: 20190326
  2. FLUOROURACIL. [Suspect]
     Active Substance: FLUOROURACIL
     Dosage: 400 MG, UNK
     Route: 040
     Dates: start: 20190326
  3. VECTIBIX [Suspect]
     Active Substance: PANITUMUMAB
     Indication: COLORECTAL CANCER METASTATIC
     Dosage: 6 MG, UNK
     Route: 042
     Dates: start: 20190326
  4. FERROSANOL [Concomitant]
     Active Substance: FERROUS GLUCONATE
     Dosage: 100 MG, QD(80 MG, TID TO 100 MG, QD)
     Route: 048
  5. GLANDOMED [Concomitant]
     Indication: PROPHYLAXIS
     Dosage: 60 ML, QD
     Route: 048
     Dates: start: 20180516
  6. OXALIPLATIN. [Suspect]
     Active Substance: OXALIPLATIN
     Indication: COLORECTAL CANCER METASTATIC
     Dosage: 165 MG, UNK
     Route: 065
     Dates: start: 20180516, end: 20180814
  7. FLUOROURACIL. [Suspect]
     Active Substance: FLUOROURACIL
     Indication: COLORECTAL CANCER METASTATIC
     Dosage: 4650 MG, UNK
     Route: 042
     Dates: start: 20180516, end: 20181106
  8. OXALIPLATIN. [Suspect]
     Active Substance: OXALIPLATIN
     Dosage: 135 MG, UNK
     Route: 065
     Dates: start: 20190226, end: 20190312
  9. FLUOROURACIL. [Suspect]
     Active Substance: FLUOROURACIL
     Dosage: 800 MG
     Route: 040
     Dates: start: 20190516, end: 20190312
  10. FLUOROURACIL. [Suspect]
     Active Substance: FLUOROURACIL
     Dosage: 2400 MG, UNK
     Route: 042
  11. VECTIBIX [Suspect]
     Active Substance: PANITUMUMAB
     Dosage: 460 MG
     Route: 042
     Dates: start: 20180516, end: 20180925
  12. GLANDOMED [Concomitant]
     Dosage: 40 ML, BID
     Route: 048
  13. PLIAZON [Concomitant]
     Indication: PROPHYLAXIS
     Dosage: UNK UNK, AS NECESSARY
     Route: 061
     Dates: start: 20180516, end: 20181029
  14. FERROSANOL [Concomitant]
     Active Substance: FERROUS GLUCONATE
     Indication: ANAEMIA
     Dosage: 80 MG, TID(80 MG, TID TO 100 MG, QD)
     Route: 048
     Dates: start: 20180514, end: 20181030
  15. CALCIUM FOLINATE [Suspect]
     Active Substance: LEUCOVORIN CALCIUM
     Dosage: 400 MG
     Route: 065
     Dates: start: 20190326
  16. FLUOROURACIL. [Suspect]
     Active Substance: FLUOROURACIL
     Dosage: 4750 MG
     Route: 042
     Dates: start: 20190226, end: 20190312
  17. MONO EMBOLEX [Concomitant]
     Active Substance: CERTOPARIN SODIUM
     Indication: PROPHYLAXIS
     Dosage: 3000 IU, QD
     Route: 058
     Dates: start: 20180412, end: 20180518
  18. GLANDOMED [Concomitant]
     Dosage: 20 ML, BID
     Route: 048
     Dates: start: 20190326
  19. DOXY-M [Concomitant]
     Active Substance: DOXYCYCLINE
     Indication: PROPHYLAXIS
     Dosage: 100 MG, QD
     Route: 048
     Dates: start: 20180516, end: 20181017
  20. CALCIUM FOLINATE [Suspect]
     Active Substance: LEUCOVORIN CALCIUM
     Indication: COLORECTAL CANCER METASTATIC
     Dosage: 780 MG
     Route: 065
     Dates: start: 20180516, end: 20181106
  21. CALCIUM FOLINATE [Suspect]
     Active Substance: LEUCOVORIN CALCIUM
     Dosage: 790 MG
     Route: 065
     Dates: start: 20190226, end: 20190312
  22. VECTIBIX [Suspect]
     Active Substance: PANITUMUMAB
     Dosage: 480 MG
     Route: 042
     Dates: start: 20190226, end: 20190312

REACTIONS (9)
  - Mucosal inflammation [Not Recovered/Not Resolved]
  - Dermatitis acneiform [Not Recovered/Not Resolved]
  - Hypertension [Recovered/Resolved]
  - Hypocalcaemia [Unknown]
  - Lymphocyte count decreased [Recovered/Resolved]
  - Infection [Recovered/Resolved]
  - Epistaxis [Not Recovered/Not Resolved]
  - Constipation [Not Recovered/Not Resolved]
  - Fatigue [Not Recovered/Not Resolved]

NARRATIVE: CASE EVENT DATE: 20180517
